FAERS Safety Report 25919803 (Version 1)
Quarter: 2025Q4

REPORT INFORMATION
  Report Type: Spontaneous
  Country: US (occurrence: US)
  Receive Date: 20251014
  Receipt Date: 20251014
  Transmission Date: 20260117
  Serious: Yes (Hospitalization)
  Sender: ROCHE
  Company Number: US-ROCHE-10000408124

PATIENT
  Sex: Female

DRUGS (2)
  1. XOLAIR PFS [Suspect]
     Active Substance: OMALIZUMAB
     Indication: Idiopathic urticaria
     Dosage: STRENGTH: 150 MG/ML?SHE RECEIVED SUBSEQUENT DOSE OF OMALIZUMAB: 01-OCT-2025
     Route: 058
     Dates: start: 20241008
  2. XOLAIR PFS [Suspect]
     Active Substance: OMALIZUMAB

REACTIONS (3)
  - Blood creatinine increased [Unknown]
  - Dehydration [Unknown]
  - Maternal exposure before pregnancy [Unknown]
